FAERS Safety Report 23303394 (Version 1)
Quarter: 2023Q4

REPORT INFORMATION
  Report Type: Spontaneous
  Country: US (occurrence: None)
  Receive Date: 20231215
  Receipt Date: 20231215
  Transmission Date: 20240110
  Serious: Yes (Hospitalization)
  Sender: FDA-Public Use
  Company Number: None

PATIENT
  Age: 72 Year
  Sex: Female

DRUGS (5)
  1. BOTOX [Suspect]
     Active Substance: ONABOTULINUMTOXINA
     Indication: Blepharospasm
     Dosage: OTHER QUANTITY : 100 UNIT;?OTHER FREQUENCY : EVERY 3 MONTHS;?
     Route: 030
     Dates: start: 20200825
  2. ALPRAZOLAM [Concomitant]
  3. LISINOPRIL [Concomitant]
  4. PREGABALIN [Concomitant]
     Active Substance: PREGABALIN
  5. VITAMIN D3 [Concomitant]

REACTIONS (1)
  - Hip fracture [None]

NARRATIVE: CASE EVENT DATE: 20231212
